FAERS Safety Report 17048166 (Version 3)
Quarter: 2020Q2

REPORT INFORMATION
  Report Type: Spontaneous
  Country: US (occurrence: US)
  Receive Date: 20191119
  Receipt Date: 20200623
  Transmission Date: 20200713
  Serious: No
  Sender: FDA-Public Use
  Company Number: US-PFIZER INC-2019496179

PATIENT
  Age: 72 Year
  Sex: Female
  Weight: 67.12 kg

DRUGS (5)
  1. FLECTOR [Suspect]
     Active Substance: DICLOFENAC EPOLAMINE
     Indication: NECK PAIN
     Dosage: 1.3 %, 2X/DAY (1.3% PATCH, APPLIES 2 A DAY, 1 FOR HER NECK AND 1 FOR HER BACK INJURY)
     Dates: start: 2017
  2. FLECTOR [Suspect]
     Active Substance: DICLOFENAC EPOLAMINE
     Indication: NECK INJURY
  3. CELEBREX [Concomitant]
     Active Substance: CELECOXIB
     Indication: ARTHRITIS
     Dosage: 200 MG, 1X/DAY
     Route: 048
  4. FLECTOR [Suspect]
     Active Substance: DICLOFENAC EPOLAMINE
     Indication: BACK PAIN
     Dosage: 1.3 %, 2X/DAY (1.3%, APPLY TO BODY TWICE DAILY)
  5. FLECTOR [Suspect]
     Active Substance: DICLOFENAC EPOLAMINE
     Indication: BACK INJURY

REACTIONS (1)
  - Drug ineffective [Unknown]
